FAERS Safety Report 24699721 (Version 2)
Quarter: 2025Q1

REPORT INFORMATION
  Report Type: Spontaneous
  Country: US (occurrence: US)
  Receive Date: 20241205
  Receipt Date: 20250305
  Transmission Date: 20250409
  Serious: No
  Sender: BLUEPRINT MEDICINES
  Company Number: US-Blueprint Medicines Corporation-5498

PATIENT
  Age: 65 Year
  Sex: Male

DRUGS (2)
  1. AYVAKIT [Suspect]
     Active Substance: AVAPRITINIB
     Indication: Mast cell activation syndrome
     Route: 065
     Dates: start: 20241114
  2. AYVAKIT [Suspect]
     Active Substance: AVAPRITINIB
     Route: 065
     Dates: start: 20241114

REACTIONS (9)
  - Headache [Not Recovered/Not Resolved]
  - Migraine [Unknown]
  - Condition aggravated [Not Recovered/Not Resolved]
  - Brain fog [Unknown]
  - Stress [Unknown]
  - Depressed mood [Unknown]
  - Facial pain [Unknown]
  - Adverse drug reaction [Unknown]
  - Off label use [Unknown]
